FAERS Safety Report 6052103-6 (Version None)
Quarter: 2009Q1

REPORT INFORMATION
  Report Type: 
  Country: None (occurrence: None)
  Receive Date: 20090126
  Receipt Date: 20090119
  Transmission Date: 20090719
  Serious: Yes (Hospitalization, Other)
  Sender: FDA-Public Use
  Company Number: TW-ROXANE LABORATORIES, INC.-2009-RO-00084RO

PATIENT
  Age: 74 Year
  Sex: Male

DRUGS (9)
  1. MYCOPHENOLATE MOFETIL [Suspect]
     Indication: IMMUNOSUPPRESSANT DRUG THERAPY
     Dosage: 1000MG
  2. TACROLIMUS [Suspect]
     Indication: IMMUNOSUPPRESSANT DRUG THERAPY
     Dosage: 2MG
  3. TACROLIMUS [Suspect]
     Dosage: 1MG
  4. PREDNISOLONE [Suspect]
     Indication: IMMUNOSUPPRESSANT DRUG THERAPY
     Dosage: 20MG
  5. PREDNISOLONE [Suspect]
     Dosage: 5MG
  6. CEFEPIME [Suspect]
     Indication: EVIDENCE BASED TREATMENT
     Dosage: 2G
  7. CEFTRIAXONE [Suspect]
     Indication: GASTROENTERITIS SALMONELLA
     Dosage: 2G
  8. THYROXINE [Suspect]
     Indication: POST PROCEDURAL HYPOTHYROIDISM
     Dosage: 50MG
  9. CYCLOSPORINE [Concomitant]
     Indication: IMMUNOSUPPRESSANT DRUG THERAPY
     Dosage: 100MG

REACTIONS (5)
  - CARDIAC MURMUR [None]
  - GASTROENTERITIS SALMONELLA [None]
  - MYCOTIC ANEURYSM [None]
  - POST PROCEDURAL HYPOTHYROIDISM [None]
  - THYROIDITIS [None]
